FAERS Safety Report 13732342 (Version 1)
Quarter: 2017Q3

REPORT INFORMATION
  Report Type: Spontaneous
  Country: US (occurrence: US)
  Receive Date: 20170707
  Receipt Date: 20170707
  Transmission Date: 20171127
  Serious: No
  Sender: FDA-Public Use
  Company Number: US-SA-2017SA085788

PATIENT
  Sex: Female

DRUGS (1)
  1. DUPILUMAB [Suspect]
     Active Substance: DUPILUMAB
     Route: 065

REACTIONS (5)
  - Eye disorder [Unknown]
  - Ocular hyperaemia [Unknown]
  - Fatigue [Unknown]
  - Eye swelling [Unknown]
  - Visual impairment [Unknown]
